FAERS Safety Report 22254269 (Version 2)
Quarter: 2023Q2

REPORT INFORMATION
  Report Type: Spontaneous
  Country: US (occurrence: US)
  Receive Date: 20230426
  Receipt Date: 20230525
  Transmission Date: 20230721
  Serious: Yes (Other)
  Sender: FDA-Public Use
  Company Number: US-UNITED THERAPEUTICS-UNT-2023-005585

PATIENT
  Age: 26 Year
  Sex: Female
  Weight: 102.49 kg

DRUGS (10)
  1. REMODULIN [Suspect]
     Active Substance: TREPROSTINIL
     Indication: Pulmonary arterial hypertension
     Dosage: 0.010 ?G/KG, CONTINUING (PHARMACY FILLED WITH 2.4 ML CASSETTE AT A RATE OF 24 MCL PER HOUR)
     Route: 058
  2. REMODULIN [Suspect]
     Active Substance: TREPROSTINIL
     Dosage: 0.012 ?G/KG, CONTINUING (PHARMACY PRE-FILLED WITH 3 ML PER CASSETTE. PUMP RATE OF 29 MCL PER HOUR)
     Route: 058
  3. REMODULIN [Suspect]
     Active Substance: TREPROSTINIL
     Dosage: UNK, CONTINUING (PHARMACY FILLED WITH 2.6 ML PER CASSETTE. REMUNITY PUMP RATE 24 MCL PER HOUR)
     Route: 058
  4. REMODULIN [Suspect]
     Active Substance: TREPROSTINIL
     Dosage: UNK, CONTINUING
     Route: 058
     Dates: start: 20221107
  5. REMODULIN [Suspect]
     Active Substance: TREPROSTINIL
     Indication: Pulmonary arterial hypertension
     Dosage: 0.015 ?G/KG, CONTINUING (PHARMACY FILLED REMUNITY; PRE-FILLED WITH 2.2 ML PER CASSETTE, AT A RATE OF
     Route: 058
  6. REMODULIN [Suspect]
     Active Substance: TREPROSTINIL
     Dosage: 0.017 ?G/KG, CONTINUING (PHARMACY PRE-FILLED WITH 2.2 ML PER CASSETTE; PUMP RATE OF 20 MCL PER HOUR)
     Route: 058
  7. REMODULIN [Suspect]
     Active Substance: TREPROSTINIL
     Dosage: 0.019 ?G/KG, CONTINUING (PHARMACY FILLED 2.4ML PER CASSETTE, PUMP RATE 23 MCL/ HOUR)
     Route: 058
  8. REMODULIN [Suspect]
     Active Substance: TREPROSTINIL
     Dosage: UNK, CONTINUING
     Route: 058
  9. TADALAFIL [Concomitant]
     Active Substance: TADALAFIL
     Indication: Product used for unknown indication
     Dosage: UNK
     Route: 065
  10. AMBRISENTAN [Concomitant]
     Active Substance: AMBRISENTAN
     Indication: Product used for unknown indication
     Dosage: UNK
     Route: 065

REACTIONS (18)
  - Dyspnoea at rest [Unknown]
  - Dyspnoea exertional [Unknown]
  - Weight increased [Unknown]
  - Fatigue [Unknown]
  - Restless legs syndrome [Unknown]
  - Dyspepsia [Unknown]
  - Diarrhoea [Unknown]
  - Stress [Unknown]
  - Hypersomnia [Unknown]
  - Asthenia [Unknown]
  - Infusion site pain [Unknown]
  - Infusion site erythema [Unknown]
  - Malaise [Unknown]
  - Joint swelling [Unknown]
  - Eating disorder [Unknown]
  - Device infusion issue [Unknown]
  - Wrong product administered [Unknown]
  - Drug titration error [Unknown]

NARRATIVE: CASE EVENT DATE: 20230401
